FAERS Safety Report 5083475-7 (Version None)
Quarter: 2006Q3

REPORT INFORMATION
  Report Type: 
  Country: None (occurrence: None)
  Receive Date: 20060818
  Receipt Date: 20060807
  Transmission Date: 20061208
  Serious: Yes (Hospitalization)
  Sender: FDA-Public Use
  Company Number: ES-GILEAD-2006-0010008

PATIENT
  Age: 39 Year
  Sex: Female

DRUGS (6)
  1. VIREAD [Suspect]
     Route: 048
     Dates: start: 20050601, end: 20060507
  2. VIRAMUNE [Suspect]
     Route: 048
     Dates: start: 20050601, end: 20060507
  3. EPIVIR [Suspect]
     Route: 048
     Dates: start: 20050601, end: 20060507
  4. DALACIN [Suspect]
     Route: 048
     Dates: start: 20050601, end: 20060507
  5. IBUPROFEN [Suspect]
     Route: 048
     Dates: start: 20060401, end: 20060408
  6. CLAMOXYL [Suspect]
     Route: 048
     Dates: start: 20060401, end: 20060415

REACTIONS (1)
  - HEPATITIS CHOLESTATIC [None]
